FAERS Safety Report 12249957 (Version 4)
Quarter: 2016Q3

REPORT INFORMATION
  Report Type: Spontaneous
  Country: US (occurrence: US)
  Receive Date: 20160408
  Receipt Date: 20160824
  Transmission Date: 20161109
  Serious: Yes (Other)
  Sender: FDA-Public Use
  Company Number: US-TEVA-649269USA

PATIENT
  Age: 42 Year
  Sex: Female

DRUGS (10)
  1. ZECUITY [Suspect]
     Active Substance: SUMATRIPTAN SUCCINATE
     Route: 062
     Dates: start: 20160325, end: 20160325
  2. FAMOTIDINE. [Concomitant]
     Active Substance: FAMOTIDINE
  3. FENOFIBRATE. [Concomitant]
     Active Substance: FENOFIBRATE
  4. LEVOTHYROXINE. [Concomitant]
     Active Substance: LEVOTHYROXINE
  5. ZECUITY [Suspect]
     Active Substance: SUMATRIPTAN SUCCINATE
     Route: 062
     Dates: start: 20160331, end: 20160331
  6. ZOVIA [Concomitant]
     Active Substance: ETHINYL ESTRADIOL\ETHYNODIOL DIACETATE
  7. CYMBALTA [Concomitant]
     Active Substance: DULOXETINE HYDROCHLORIDE
  8. BYDUREON [Concomitant]
     Active Substance: EXENATIDE
  9. ATENOLOL. [Concomitant]
     Active Substance: ATENOLOL
  10. NAPROXEN. [Concomitant]
     Active Substance: NAPROXEN

REACTIONS (13)
  - Application site erythema [Recovered/Resolved]
  - Product leakage [Unknown]
  - Application site exfoliation [Unknown]
  - Application site discomfort [Unknown]
  - Thermal burn [Recovered/Resolved]
  - Sunburn [Recovered/Resolved]
  - Application site paraesthesia [Recovered/Resolved]
  - Application site warmth [Recovered/Resolved]
  - Application site irritation [Recovered/Resolved]
  - Application site pain [Recovered/Resolved]
  - Application site pruritus [Recovered/Resolved]
  - Application site rash [Recovered/Resolved]
  - Application site erosion [Unknown]

NARRATIVE: CASE EVENT DATE: 20160325
